FAERS Safety Report 25942954 (Version 1)
Quarter: 2025Q4

REPORT INFORMATION
  Report Type: Spontaneous
  Country: JP (occurrence: JP)
  Receive Date: 20251021
  Receipt Date: 20251021
  Transmission Date: 20260118
  Serious: Yes (Death, Other)
  Sender: AMGEN
  Company Number: JP-AMGEN-JPNSP2025205959

PATIENT

DRUGS (3)
  1. BEVACIZUMAB [Suspect]
     Active Substance: BEVACIZUMAB
     Indication: Hepatocellular carcinoma
     Dosage: UNK
     Route: 065
  2. ATEZOLIZUMAB [Suspect]
     Active Substance: ATEZOLIZUMAB
     Indication: Hepatocellular carcinoma
     Route: 065
  3. DURVALUMAB\TREMELIMUMAB [Suspect]
     Active Substance: DURVALUMAB\TREMELIMUMAB
     Indication: Hepatocellular carcinoma
     Route: 065

REACTIONS (8)
  - Immune-mediated adverse reaction [Fatal]
  - Hepatocellular carcinoma [Unknown]
  - Colitis [Unknown]
  - Drug effective for unapproved indication [Unknown]
  - Rash [Unknown]
  - Liver disorder [Unknown]
  - Off label use [Unknown]
  - Hypertension [Unknown]
